FAERS Safety Report 6384464-2 (Version None)
Quarter: 2009Q3

REPORT INFORMATION
  Report Type: 
  Country: None (occurrence: None)
  Receive Date: 20090929
  Receipt Date: 20090918
  Transmission Date: 20100115
  Serious: Yes (Hospitalization)
  Sender: FDA-Public Use
  Company Number: GXKR2009MY10429

PATIENT
  Age: 82 Year
  Sex: Female

DRUGS (3)
  1. ALENDRONIC ACID (NGX) (ALENDRONIUC ACID) UNKNOWN [Suspect]
     Indication: OSTEOPOROSIS
     Dosage: 70 MG, QW
     Dates: start: 20000101
  2. CALCIUM (CALCIUM) [Concomitant]
  3. VITAMIN D [Concomitant]

REACTIONS (2)
  - FALL [None]
  - FEMUR FRACTURE [None]
